FAERS Safety Report 9025380 (Version 1)
Quarter: 2013Q1

REPORT INFORMATION
  Report Type: Spontaneous
  Country: JP (occurrence: JP)
  Receive Date: 20130122
  Receipt Date: 20130122
  Transmission Date: 20140127
  Serious: Yes (Other)
  Sender: FDA-Public Use
  Company Number: JP-UCBSA-075791

PATIENT
  Sex: 0

DRUGS (3)
  1. E KEPPRA [Suspect]
     Indication: STATUS EPILEPTICUS
     Route: 048
     Dates: start: 20121226, end: 20121227
  2. ISOZOL [Concomitant]
     Dates: end: 20121228
  3. ZOVIRAX [Concomitant]
     Dates: end: 20121228

REACTIONS (1)
  - Renal impairment [Unknown]
